FAERS Safety Report 5209939-0 (Version None)
Quarter: 2006Q4

REPORT INFORMATION
  Report Type: 
  Country: None (occurrence: None)
  Receive Date: 20061128
  Receipt Date: 20060626
  Transmission Date: 20070319
  Serious: Yes (Other)
  Sender: FDA-Public Use
  Company Number: 2006066113

PATIENT
  Age: 70 Year
  Sex: Male
  Weight: 79.3795 kg

DRUGS (9)
  1. TIKOSYN [Suspect]
     Indication: ATRIAL FIBRILLATION
     Dosage: 500 MCG (250 MCG, 2 IN 1 D)
     Dates: start: 20060210
  2. WARFARIN SODIUM [Concomitant]
  3. ASPIRIN [Concomitant]
  4. LIPITOR [Concomitant]
  5. LASIX [Concomitant]
  6. DIOVAN [Concomitant]
  7. FOLIC ACID [Concomitant]
  8. CARDIZEM [Concomitant]
  9. B12 SHOTS (CYANOCOBALAMIN) [Concomitant]

REACTIONS (1)
  - ATRIAL FIBRILLATION [None]
